FAERS Safety Report 10212986 (Version 1)
Quarter: 2014Q2

REPORT INFORMATION
  Report Type: Report from Study
  Country: BR (occurrence: BR)
  Receive Date: 20140602
  Receipt Date: 20140602
  Transmission Date: 20141212
  Serious: Yes (Other)
  Sender: FDA-Public Use
  Company Number: PHHY2014BR065019

PATIENT
  Age: 41 Year
  Sex: Female

DRUGS (53)
  1. EVEROLIMUS [Suspect]
     Indication: RENAL TRANSPLANT
     Dosage: 0.5 MG, DAY 0
  2. EVEROLIMUS [Interacting]
     Indication: IMMUNOSUPPRESSION
     Dosage: DAY 15
  3. EVEROLIMUS [Interacting]
     Dosage: 1 MONTH
  4. EVEROLIMUS [Interacting]
     Dosage: 1.5 MONTH
  5. EVEROLIMUS [Interacting]
     Dosage: 2 MONTH
  6. EVEROLIMUS [Interacting]
     Dosage: 3 MONTH
  7. EVEROLIMUS [Interacting]
     Dosage: 6 MONTH
  8. EVEROLIMUS [Interacting]
     Dosage: 0.25 MG, BID CURRENTLY
  9. BASILIXIMAB [Suspect]
     Indication: IMMUNOSUPPRESSION
     Dosage: UNK UKN, UNK
  10. CICLOSPORIN [Interacting]
     Indication: TOXICITY TO VARIOUS AGENTS
     Dosage: 225 MG, DAY 0
  11. CICLOSPORIN [Interacting]
     Dosage: DAY 15
  12. CICLOSPORIN [Interacting]
     Dosage: 1 MONTH
  13. CICLOSPORIN [Interacting]
     Dosage: 1.5 MONTH
  14. CICLOSPORIN [Interacting]
     Dosage: 2 MONTH
  15. CICLOSPORIN [Interacting]
     Dosage: 3 MONTH
  16. CICLOSPORIN [Interacting]
     Dosage: 6 MONTHS
  17. CICLOSPORIN [Interacting]
     Dosage: 25 MG, BID, CURRENTLY
  18. PREDNISONE [Suspect]
     Indication: IMMUNOSUPPRESSION
     Dosage: 20 MG, DAY 0
  19. PREDNISONE [Suspect]
     Dosage: UNK UKN, UNK
  20. PREDNISONE [Suspect]
     Dosage: DAY 15
  21. PREDNISONE [Suspect]
     Dosage: 1MONTH
  22. PREDNISONE [Suspect]
     Dosage: 1.5 MONTH
  23. PREDNISONE [Suspect]
     Dosage: 2 MONTH
  24. PREDNISONE [Suspect]
     Dosage: 3 MONTH
  25. PREDNISONE [Suspect]
     Dosage: 6MONTHS
  26. PREDNISONE [Suspect]
     Dosage: 5 MG, CURRENTLY
  27. ABACAVIR [Interacting]
     Indication: ANTIRETROVIRAL THERAPY
     Dosage: UNK UKN, UNK
  28. ABACAVIR [Interacting]
     Dosage: D0
  29. ABACAVIR [Interacting]
     Dosage: D15
  30. ABACAVIR [Interacting]
     Dosage: 1 MONTH
  31. ABACAVIR [Interacting]
     Dosage: 1.5 MONTHS
  32. ABACAVIR [Interacting]
     Dosage: 2 MONTHS
  33. ABACAVIR [Interacting]
     Dosage: 3 MONTHS
  34. ABACAVIR [Interacting]
     Dosage: 6 MONTHS
  35. ABACAVIR [Interacting]
     Dosage: CURRENTLY
  36. ATAZANAVIR [Interacting]
     Indication: ANTIRETROVIRAL THERAPY
     Dosage: UNK UKN, UNK
  37. ATAZANAVIR [Interacting]
     Dosage: D0
  38. ATAZANAVIR [Interacting]
     Dosage: D15
  39. ATAZANAVIR [Interacting]
     Dosage: 1 MONTH
  40. ATAZANAVIR [Interacting]
     Dosage: 1.5 MONTHS
  41. ATAZANAVIR [Interacting]
     Dosage: 2 MONTHS
  42. ATAZANAVIR [Interacting]
     Dosage: 3 MONTHS
  43. ATAZANAVIR [Interacting]
     Dosage: 6 MONTHS
  44. ATAZANAVIR [Interacting]
     Dosage: CURRENTLY
  45. LAMIVUDINE [Interacting]
     Indication: ANTIRETROVIRAL THERAPY
     Dosage: UNK UKN, UNK
  46. LAMIVUDINE [Interacting]
     Dosage: D0
  47. LAMIVUDINE [Interacting]
     Dosage: D15
  48. LAMIVUDINE [Interacting]
     Dosage: 1 MONTH
  49. LAMIVUDINE [Interacting]
     Dosage: 1.5 MONTHS
  50. LAMIVUDINE [Interacting]
     Dosage: 2MONTHS
  51. LAMIVUDINE [Interacting]
     Dosage: 3 MONTHS
  52. LAMIVUDINE [Interacting]
     Dosage: 6 MONTHS
  53. LAMIVUDINE [Interacting]
     Dosage: CURRENTLY

REACTIONS (13)
  - Drug interaction [Unknown]
  - Anaemia [Unknown]
  - Red cell fragmentation syndrome [Unknown]
  - Thrombotic microangiopathy [Unknown]
  - Pyelonephritis acute [Unknown]
  - Oral candidiasis [Unknown]
  - Blood lactate dehydrogenase increased [Unknown]
  - Immunosuppressant drug level increased [Unknown]
  - Nephropathy toxic [Unknown]
  - Toxicity to various agents [Unknown]
  - Complications of transplanted kidney [Unknown]
  - Renal tubular necrosis [Unknown]
  - Blood creatinine increased [Unknown]
